FAERS Safety Report 4921598-0 (Version None)
Quarter: 2006Q1

REPORT INFORMATION
  Report Type: 
  Country: None (occurrence: None)
  Receive Date: 20060224
  Receipt Date: 20060220
  Transmission Date: 20060701
  Serious: Yes (Death)
  Sender: FDA-Public Use
  Company Number: PHFR2006GB00907

PATIENT
  Age: 80 Year
  Sex: Male

DRUGS (1)
  1. CYCLOSPORINE [Suspect]
     Indication: POLYMORPHIC LIGHT ERUPTION
     Route: 065
     Dates: start: 20041101

REACTIONS (1)
  - RECTAL CANCER [None]
